FAERS Safety Report 9208922 (Version 1)
Quarter: 2013Q2

REPORT INFORMATION
  Report Type: Report from Study
  Country: CA (occurrence: CA)
  Receive Date: 20130404
  Receipt Date: 20130404
  Transmission Date: 20140414
  Serious: Yes (Other)
  Sender: FDA-Public Use
  Company Number: CA-JNJFOC-20130317728

PATIENT
  Sex: Female
  Weight: 58.06 kg

DRUGS (11)
  1. REMICADE [Suspect]
     Indication: RHEUMATOID ARTHRITIS
     Route: 042
     Dates: end: 201210
  2. REMICADE [Suspect]
     Indication: RHEUMATOID ARTHRITIS
     Route: 042
     Dates: start: 201210
  3. GABAPENTIN [Concomitant]
     Indication: ARTHRITIS
     Route: 065
  4. METHOTREXATE [Concomitant]
     Indication: ARTHRITIS
     Route: 065
  5. VOLTAREN [Concomitant]
     Route: 065
  6. DICLOFENAC [Concomitant]
     Route: 065
  7. PREDNISOLONE [Concomitant]
     Indication: INFLAMMATION
     Route: 065
  8. APO-HYDROXYQUINE [Concomitant]
     Indication: INFLAMMATION
     Route: 065
  9. COSOPT [Concomitant]
     Route: 065
  10. FOLIC ACID [Concomitant]
     Route: 065
  11. LYRICA [Concomitant]
     Indication: ARTHRITIS
     Route: 065

REACTIONS (1)
  - Uveitis [Unknown]
